FAERS Safety Report 16372810 (Version 2)
Quarter: 2020Q1

REPORT INFORMATION
  Report Type: Spontaneous
  Country: GB (occurrence: GB)
  Receive Date: 20190530
  Receipt Date: 20200317
  Transmission Date: 20200409
  Serious: Yes (Death, Hospitalization)
  Sender: FDA-Public Use
  Company Number: GB-PFIZER INC-2019226870

PATIENT
  Age: 64 Year
  Sex: Male
  Weight: 70 kg

DRUGS (4)
  1. CIPROFLOXACIN. [Suspect]
     Active Substance: CIPROFLOXACIN
     Indication: ARTHRITIS INFECTIVE
     Dosage: 750 MG, UNK
     Route: 048
     Dates: start: 20160507, end: 20161101
  2. ATENOLOL. [Concomitant]
     Active Substance: ATENOLOL
     Dosage: UNK
  3. CODEINE [Concomitant]
     Active Substance: CODEINE
     Dosage: UNK
  4. RIFAMPICIN SODIUM [Concomitant]
     Active Substance: RIFAMPIN SODIUM
     Dosage: UNK

REACTIONS (8)
  - Mental impairment [Fatal]
  - Hallucination [Fatal]
  - Anxiety [Fatal]
  - Delirium [Fatal]
  - Depression [Fatal]
  - Pulmonary embolism [Fatal]
  - Psychotic disorder [Fatal]
  - Catatonia [Fatal]
